FAERS Safety Report 9713385 (Version 1)
Quarter: 2013Q4

REPORT INFORMATION
  Report Type: Spontaneous
  Country: US (occurrence: None)
  Receive Date: 20131125
  Receipt Date: 20131125
  Transmission Date: 20140711
  Serious: No
  Sender: FDA-Public Use
  Company Number: None

PATIENT
  Age: 28 Year
  Sex: Female
  Weight: 86.18 kg

DRUGS (17)
  1. SUCCINYLCHOLINE [Suspect]
     Dosage: 200 MG ONE TIME INTRAVENOUS
     Route: 042
     Dates: start: 20131024, end: 20131024
  2. ULTANE [Concomitant]
  3. PROPOFOL [Concomitant]
  4. ALFENTANIL [Concomitant]
  5. VERSED [Concomitant]
  6. GLYCOPYRROLATE [Concomitant]
  7. METOCLOPRAMIDE [Concomitant]
  8. TORADOL [Concomitant]
  9. ESMOLOL [Concomitant]
  10. LIDOCAINE [Concomitant]
  11. ONDANSETRON [Concomitant]
  12. DEMEROL [Concomitant]
  13. LACTATED RINGERS SOLUTION [Concomitant]
  14. BUPIVACAINE [Concomitant]
  15. CEFAZOLIN [Concomitant]
  16. DROPERIDOL [Concomitant]
  17. SALINE [Concomitant]

REACTIONS (4)
  - Axillary mass [None]
  - Pain in jaw [None]
  - Muscle tightness [None]
  - Pain [None]
